FAERS Safety Report 15803218 (Version 1)
Quarter: 2019Q1

REPORT INFORMATION
  Report Type: Spontaneous
  Country: US (occurrence: US)
  Receive Date: 20190109
  Receipt Date: 20190109
  Transmission Date: 20190417
  Serious: No
  Sender: FDA-Public Use
  Company Number: None

PATIENT
  Age: 29 Year
  Sex: Female
  Weight: 160 kg

DRUGS (1)
  1. PARAGARD T 380A [Suspect]
     Active Substance: COPPER
     Indication: CONTRACEPTION
     Dosage: ?          QUANTITY:1 IUD;?
     Dates: start: 20170320

REACTIONS (5)
  - Menorrhagia [None]
  - Feeling abnormal [None]
  - Oligomenorrhoea [None]
  - Dysmenorrhoea [None]
  - Impaired work ability [None]
